FAERS Safety Report 7886022-7 (Version None)
Quarter: 2011Q4

REPORT INFORMATION
  Report Type: 
  Country: None (occurrence: None)
  Receive Date: 20111102
  Receipt Date: 20110706
  Transmission Date: 20120403
  Serious: No
  Sender: FDA-Public Use
  Company Number: US-AMGEN-USASP2011028845

PATIENT
  Age: 44 Year
  Sex: Female
  Weight: 130.61 kg

DRUGS (1)
  1. ENBREL [Suspect]
     Indication: RHEUMATOID ARTHRITIS
     Dosage: 50 MG, QWK
     Dates: start: 20100713

REACTIONS (4)
  - OBESITY [None]
  - EXOSTOSIS [None]
  - ARTHRALGIA [None]
  - OSTEOARTHRITIS [None]
